FAERS Safety Report 5303912-X (Version None)
Quarter: 2007Q1

REPORT INFORMATION
  Report Type: 
  Country: None (occurrence: None)
  Receive Date: 20070201
  Receipt Date: 20061120
  Transmission Date: 20070707
  Serious: No
  Sender: FDA-Public Use
  Company Number: 2006PV025571

PATIENT
  Age: 63 Year
  Sex: Female
  Weight: 61.2356 kg

DRUGS (7)
  1. BYETTA [Suspect]
     Indication: DIABETES MELLITUS NON-INSULIN-DEPENDENT
     Dosage: 5 MCG;BID;SC
     Route: 058
     Dates: start: 20061101
  2. METFORMIN HCL [Concomitant]
  3. AMARYL [Concomitant]
  4. PRILOSEC [Concomitant]
  5. NEURONTIN [Concomitant]
  6. ZOCOR [Concomitant]
  7. CENTRUM SILVER [Concomitant]

REACTIONS (9)
  - CHEST PAIN [None]
  - CONSTIPATION [None]
  - DIARRHOEA [None]
  - DYSPNOEA [None]
  - ERUCTATION [None]
  - HEADACHE [None]
  - HYPERHIDROSIS [None]
  - INJECTION SITE URTICARIA [None]
  - WEIGHT DECREASED [None]
